FAERS Safety Report 14703677 (Version 2)
Quarter: 2018Q2

REPORT INFORMATION
  Report Type: Report from Study
  Country: None (occurrence: DE)
  Receive Date: 20180402
  Receipt Date: 20180406
  Transmission Date: 20180711
  Serious: Yes (Hospitalization)
  Sender: FDA-Public Use
  Company Number: DE-ABBVIE-18K-062-2305967-00

PATIENT
  Age: 36 Year
  Sex: Male
  Weight: 136 kg

DRUGS (2)
  1. HUMIRA [Suspect]
     Active Substance: ADALIMUMAB
     Indication: PSORIASIS
     Route: 058
     Dates: start: 20150528, end: 20170922
  2. HUMIRA [Suspect]
     Active Substance: ADALIMUMAB
     Indication: PSORIATIC ARTHROPATHY
     Route: 058
     Dates: start: 20180115

REACTIONS (7)
  - Carpal tunnel syndrome [Unknown]
  - Hypoaesthesia [Unknown]
  - Pharyngitis [Unknown]
  - Tonsillitis [Unknown]
  - Peripheral coldness [Recovering/Resolving]
  - Dysaesthesia [Not Recovered/Not Resolved]
  - Paraesthesia [Recovering/Resolving]

NARRATIVE: CASE EVENT DATE: 201709
